FAERS Safety Report 11010103 (Version 1)
Quarter: 2015Q2

REPORT INFORMATION
  Report Type: Report from Study
  Country: NL (occurrence: NL)
  Receive Date: 20150410
  Receipt Date: 20150410
  Transmission Date: 20150821
  Serious: Yes (Hospitalization, Other)
  Sender: FDA-Public Use
  Company Number: NL-BAYER-2014-048794

PATIENT
  Age: 67 Year
  Sex: Male

DRUGS (11)
  1. PANTOPRAZOLE [Concomitant]
     Active Substance: PANTOPRAZOLE SODIUM
  2. SPIRONOLACTON [Concomitant]
     Active Substance: SPIRONOLACTONE
  3. PARACETAMOL [Concomitant]
     Active Substance: ACETAMINOPHEN
  4. ERYTHROPOIETIN [Concomitant]
     Active Substance: ERYTHROPOIETIN
  5. CRESTOR [Concomitant]
     Active Substance: ROSUVASTATIN CALCIUM
  6. BETAFERON [Suspect]
     Active Substance: INTERFERON BETA-1B
     Indication: SECONDARY PROGRESSIVE MULTIPLE SCLEROSIS
  7. CARVEDILOL. [Concomitant]
     Active Substance: CARVEDILOL
  8. ACENOCOUMAROL [Concomitant]
     Active Substance: ACENOCOUMAROL
  9. CABERGOLINE. [Concomitant]
     Active Substance: CABERGOLINE
  10. BETAFERON [Suspect]
     Active Substance: INTERFERON BETA-1B
     Indication: MULTIPLE SCLEROSIS
     Dosage: UNK
     Dates: start: 1999, end: 2014
  11. BUMETANIDE. [Concomitant]
     Active Substance: BUMETANIDE

REACTIONS (13)
  - Cardiac failure [None]
  - Fatigue [Recovering/Resolving]
  - Pneumothorax [None]
  - Prolactinoma [None]
  - Lung infection [None]
  - Coronary artery bypass [Recovered/Resolved]
  - Dyspnoea [Recovering/Resolving]
  - Myocardial infarction [Recovered/Resolved]
  - Cardiac failure [Recovering/Resolving]
  - Haemoglobin decreased [None]
  - Peripheral coldness [Not Recovered/Not Resolved]
  - Neuropathy peripheral [None]
  - Urinary retention [None]

NARRATIVE: CASE EVENT DATE: 2005
